FAERS Safety Report 5499102-0 (Version None)
Quarter: 2007Q4

REPORT INFORMATION
  Report Type: 
  Country: None (occurrence: None)
  Receive Date: 20071026
  Receipt Date: 20070531
  Transmission Date: 20080405
  Serious: No
  Sender: FDA-Public Use
  Company Number: A0653671A

PATIENT
  Age: 67 Year
  Sex: Female

DRUGS (9)
  1. ADVAIR DISKUS 100/50 [Suspect]
     Indication: DRUG USE FOR UNKNOWN INDICATION
     Route: 055
     Dates: start: 20070523, end: 20070527
  2. CORGARD [Concomitant]
  3. WELLBUTRIN SR [Concomitant]
  4. KLONOPIN [Concomitant]
  5. EVISTA [Concomitant]
  6. NEXIUM [Concomitant]
  7. IMITREX [Concomitant]
  8. MUCINEX [Concomitant]
  9. ALBUTEROL [Concomitant]

REACTIONS (2)
  - GINGIVAL BLEEDING [None]
  - TOOTH DEPOSIT [None]
